FAERS Safety Report 25545998 (Version 1)
Quarter: 2025Q3

REPORT INFORMATION
  Report Type: Spontaneous
  Country: GB (occurrence: GB)
  Receive Date: 20250712
  Receipt Date: 20250712
  Transmission Date: 20251020
  Serious: Yes (Hospitalization)
  Sender: CELLTRION
  Company Number: GB-CELLTRION INC.-2025GB022514

PATIENT

DRUGS (1)
  1. YUFLYMA [Suspect]
     Active Substance: ADALIMUMAB-AATY
     Indication: Colitis ulcerative
     Dosage: 40MG FOR INJECTION PENS, INJECT ONE PRE-FILLED PEN EVERY TWO WEEKS
     Route: 058
     Dates: start: 202501

REACTIONS (1)
  - Hospitalisation [Unknown]
